FAERS Safety Report 23229962 (Version 1)
Quarter: 2023Q4

REPORT INFORMATION
  Report Type: Spontaneous
  Country: US (occurrence: None)
  Receive Date: 20231127
  Receipt Date: 20231127
  Transmission Date: 20240110
  Serious: No
  Sender: FDA-Public Use
  Company Number: US-ROCHE-3230854

PATIENT
  Sex: Female
  Weight: 103.06 kg

DRUGS (11)
  1. TAMIFLU [Suspect]
     Active Substance: OSELTAMIVIR PHOSPHATE
     Indication: Influenza
     Route: 048
     Dates: start: 20221129, end: 20221130
  2. TRULICITY [Concomitant]
     Active Substance: DULAGLUTIDE
     Indication: Type 2 diabetes mellitus
     Dosage: STARTED BEFORE TAMIFLU ;ONGOING: YES
     Route: 058
  3. JARDIANCE [Concomitant]
     Active Substance: EMPAGLIFLOZIN
     Indication: Type 2 diabetes mellitus
     Dosage: STARTED BEFORE TAMIFLU ;ONGOING: YES
     Route: 048
  4. ROSUVASTATIN [Concomitant]
     Active Substance: ROSUVASTATIN
     Indication: Blood cholesterol increased
     Dosage: STARTED BEFORE TAMIFLU ;ONGOING: YES
     Route: 048
  5. DULOXETINE [Concomitant]
     Active Substance: DULOXETINE
     Indication: Neuropathy peripheral
     Dosage: STARTED BEFORE TAMIFLU ;ONGOING: YES
     Route: 048
  6. LATANOPROST [Concomitant]
     Active Substance: LATANOPROST
     Indication: Ocular hypertension
     Dosage: 1 DROP EACH EYE DAILY; STARTED BEFORE TAMIFLU ;ONGOING: YES
     Route: 047
  7. TRAMADOL [Concomitant]
     Active Substance: TRAMADOL\TRAMADOL HYDROCHLORIDE
     Indication: Pain
     Dosage: STARTED BEFORE TAMIFLU ;ONGOING: YES
     Route: 048
  8. TYLENOL [Concomitant]
     Active Substance: ACETAMINOPHEN
     Indication: Pain
     Dosage: THREE 500 MG CAPLETS AS NEEDED; STARTED BEFORE TAMIFLU ;ONGOING: YES
     Route: 048
  9. TYLENOL [Concomitant]
     Active Substance: ACETAMINOPHEN
     Indication: Swelling
  10. BROM/PSE/DM [Concomitant]
     Indication: Cough
     Dosage: STARTED BEFORE TAMIFLU ;ONGOING: YES
     Route: 048
  11. IMMUNOGLOBULINS [Concomitant]
     Dosage: STARTED BEFORE TAMIFLU ;ONGOING: YES
     Route: 042

REACTIONS (6)
  - Pharyngeal mass [Recovering/Resolving]
  - Eye swelling [Recovering/Resolving]
  - Pyrexia [Unknown]
  - Feeling abnormal [Unknown]
  - Cough [Unknown]
  - Malaise [Unknown]

NARRATIVE: CASE EVENT DATE: 20221129
